FAERS Safety Report 12800554 (Version 1)
Quarter: 2016Q3

REPORT INFORMATION
  Report Type: Report from Study
  Country: US (occurrence: US)
  Receive Date: 20160930
  Receipt Date: 20160930
  Transmission Date: 20161109
  Serious: Yes (Death)
  Sender: FDA-Public Use
  Company Number: US-ABBVIE-16K-163-1741661-00

PATIENT
  Age: 43 Year
  Sex: Male
  Weight: 62.2 kg

DRUGS (2)
  1. HUMIRA [Suspect]
     Active Substance: ADALIMUMAB
     Indication: CROHN^S DISEASE
     Route: 058
     Dates: start: 201310
  2. CYMBALTA [Concomitant]
     Active Substance: DULOXETINE HYDROCHLORIDE
     Indication: ANXIETY

REACTIONS (3)
  - Haemorrhage [Fatal]
  - Dizziness [Recovered/Resolved]
  - Cerebrovascular accident [Fatal]

NARRATIVE: CASE EVENT DATE: 20160731
